FAERS Safety Report 9841703 (Version 2)
Quarter: 2014Q1

REPORT INFORMATION
  Report Type: Report from Study
  Country: ZA (occurrence: ZA)
  Receive Date: 20140124
  Receipt Date: 20140217
  Transmission Date: 20141002
  Serious: Yes (Death, Other)
  Sender: FDA-Public Use
  Company Number: PHHY2014ZA008214

PATIENT
  Sex: Female

DRUGS (2)
  1. GLIVEC [Suspect]
     Indication: ACUTE LYMPHOCYTIC LEUKAEMIA
     Dosage: 600 MG
  2. HYPER-CVAD [Suspect]
     Dosage: UNK UKN, UNK

REACTIONS (3)
  - Neutropenic sepsis [Fatal]
  - Renal failure [Unknown]
  - Cerebrovascular accident [Unknown]
